FAERS Safety Report 4572485-1 (Version None)
Quarter: 2005Q1

REPORT INFORMATION
  Report Type: 
  Country: None (occurrence: None)
  Receive Date: 20050207
  Receipt Date: 20040617
  Transmission Date: 20050727
  Serious: Yes (Hospitalization, Other)
  Sender: FDA-Public Use
  Company Number: US-MERCK-0406USA01731

PATIENT
  Age: 65 Year
  Sex: Female
  Weight: 93 kg

DRUGS (4)
  1. VIOXX [Suspect]
     Indication: BURSITIS
     Route: 048
     Dates: start: 20020618, end: 20020620
  2. VIOXX [Suspect]
     Indication: ARTHRALGIA
     Route: 048
     Dates: start: 20020618, end: 20020620
  3. EXTRA STRENGTH TYLENOL [Concomitant]
     Route: 048
  4. ROBITUSSIN [Concomitant]
     Route: 048
     Dates: start: 20020620

REACTIONS (18)
  - ANAEMIA [None]
  - ARTHRALGIA [None]
  - ARTHRITIS [None]
  - ASTHENIA [None]
  - BLOOD GLUCOSE ABNORMAL [None]
  - BURSITIS [None]
  - CEREBROVASCULAR ACCIDENT [None]
  - DIFFICULTY IN WALKING [None]
  - DRUG INTOLERANCE [None]
  - HYPERLIPIDAEMIA [None]
  - HYPERTENSION [None]
  - LUMBAR SPINAL STENOSIS [None]
  - OTORRHOEA [None]
  - ROTATOR CUFF SYNDROME [None]
  - TREMOR [None]
  - URINARY TRACT INFECTION [None]
  - VIRAL INFECTION [None]
  - VITREOUS FLOATERS [None]
